FAERS Safety Report 17189698 (Version 1)
Quarter: 2019Q4

REPORT INFORMATION
  Report Type: Spontaneous
  Country: DE (occurrence: DE)
  Receive Date: 20191223
  Receipt Date: 20191223
  Transmission Date: 20200122
  Serious: Yes (Hospitalization)
  Sender: FDA-Public Use
  Company Number: DE-SA-2019SA352065

PATIENT
  Age: 39 Year
  Sex: Female

DRUGS (11)
  1. SALBUTAMOL [SALBUTAMOL SULFATE] [Concomitant]
     Active Substance: ALBUTEROL SULFATE
     Dosage: NK MG, BEI BEDARF
     Route: 065
  2. PREGABALIN. [Concomitant]
     Active Substance: PREGABALIN
     Dosage: 25 MG, 1-0-1-0
     Route: 065
  3. RIFAMPICIN [Suspect]
     Active Substance: RIFAMPIN
     Dosage: NK MG, NK
     Route: 065
  4. PANTOPRAZOLE [Concomitant]
     Active Substance: PANTOPRAZOLE
     Dosage: 40 MG, 1-0-0-0
     Route: 065
  5. CANDESARTAN. [Concomitant]
     Active Substance: CANDESARTAN
     Dosage: 16 MG, 1-0-0-0
     Route: 065
  6. HYGROTON [Concomitant]
     Active Substance: CHLORTHALIDONE
     Dosage: 25 MG, 1-0-0-0
     Route: 065
  7. POTASSIUM IODIDE. [Concomitant]
     Active Substance: POTASSIUM IODIDE
     Dosage: UNK UNK, QW
     Route: 065
  8. CLINDAMYCIN. [Suspect]
     Active Substance: CLINDAMYCIN
     Dosage: NK MG, NK
     Route: 065
  9. AMLODIPINE [Concomitant]
     Active Substance: AMLODIPINE BESYLATE
     Dosage: 7.5 MG, 0-0-0.33-0
     Route: 065
  10. OPIPRAMOL [Concomitant]
     Active Substance: OPIPRAMOL
     Dosage: 50 MG, 1-0-1-0
     Route: 065
  11. SYMBICORT [Concomitant]
     Active Substance: BUDESONIDE\FORMOTEROL FUMARATE DIHYDRATE
     Dosage: 160|4.5 MG, 2-0-2-0
     Route: 065

REACTIONS (4)
  - Vomiting [Unknown]
  - Nausea [Unknown]
  - General physical health deterioration [Unknown]
  - Abdominal pain upper [Unknown]
